FAERS Safety Report 25739916 (Version 1)
Quarter: 2025Q3

REPORT INFORMATION
  Report Type: Spontaneous
  Country: CN (occurrence: CN)
  Receive Date: 20250829
  Receipt Date: 20250829
  Transmission Date: 20251021
  Serious: Yes (Other)
  Sender: MERZ
  Company Number: CN-MRZWEB-2025080000150

PATIENT

DRUGS (1)
  1. BOTULINUM TOXIN TYPE A [Suspect]
     Active Substance: BOTULINUM TOXIN TYPE A
     Indication: Orbit plastic repair

REACTIONS (3)
  - Ophthalmoplegia [Recovered/Resolved]
  - Diplopia [Recovered/Resolved]
  - Product use in unapproved indication [Unknown]
